FAERS Safety Report 10369826 (Version 3)
Quarter: 2017Q4

REPORT INFORMATION
  Report Type: Report from Study
  Country: BR (occurrence: BR)
  Receive Date: 20140808
  Receipt Date: 20171102
  Transmission Date: 20180320
  Serious: Yes (Hospitalization, Other)
  Sender: FDA-Public Use
  Company Number: BR-ROCHE-1335359

PATIENT
  Sex: Female
  Weight: 62 kg

DRUGS (6)
  1. AZULFIDINE [Concomitant]
     Active Substance: SULFASALAZINE
  2. OMEPRAZOLE. [Concomitant]
     Active Substance: OMEPRAZOLE
  3. LOSARTAN. [Concomitant]
     Active Substance: LOSARTAN
  4. ACTEMRA [Suspect]
     Active Substance: TOCILIZUMAB
     Indication: RHEUMATOID ARTHRITIS
     Dosage: DATE OF LAST INFUSION RECEIVED:01 /MAY/2014
     Route: 042
     Dates: start: 20091222
  5. METICORTEN [Concomitant]
     Active Substance: PREDNISONE
  6. SCAFLAM [Concomitant]
     Active Substance: NIMESULIDE

REACTIONS (5)
  - Therapeutic response decreased [Unknown]
  - Nephrolithiasis [Unknown]
  - Jaw disorder [Unknown]
  - Alopecia [Unknown]
  - Pain in extremity [Unknown]
